FAERS Safety Report 5945292-2 (Version None)
Quarter: 2008Q4

REPORT INFORMATION
  Report Type: 
  Country: None (occurrence: None)
  Receive Date: 20081107
  Receipt Date: 20081029
  Transmission Date: 20090506
  Serious: Yes (Hospitalization)
  Sender: FDA-Public Use
  Company Number: PL-ABBOTT-08P-129-0485044-00

PATIENT
  Age: 23 Year
  Sex: Female
  Weight: 72 kg

DRUGS (7)
  1. KALETRA [Suspect]
     Indication: HIV INFECTION
     Route: 048
     Dates: start: 20080611, end: 20080822
  2. LAMIVUDINE [Concomitant]
     Indication: DRUG USE FOR UNKNOWN INDICATION
     Dates: end: 20080708
  3. COMBIGYL [Concomitant]
     Indication: DRUG USE FOR UNKNOWN INDICATION
  4. FTC/TDF [Concomitant]
     Indication: DRUG USE FOR UNKNOWN INDICATION
  5. PHENOXYMETHYLPENICILLIN BENZATHINE [Concomitant]
     Indication: DRUG USE FOR UNKNOWN INDICATION
  6. ZIDOVUDINE [Concomitant]
     Indication: DRUG USE FOR UNKNOWN INDICATION
     Dates: start: 20080709
  7. TNV [Concomitant]
     Indication: DRUG USE FOR UNKNOWN INDICATION

REACTIONS (8)
  - ABDOMINAL NEOPLASM [None]
  - DIARRHOEA [None]
  - HERPES ZOSTER [None]
  - IMMUNE RECONSTITUTION SYNDROME [None]
  - MYCOBACTERIUM AVIUM COMPLEX INFECTION [None]
  - ORAL CANDIDIASIS [None]
  - PYREXIA [None]
  - WEIGHT DECREASED [None]
